FAERS Safety Report 4707275-X (Version None)
Quarter: 2005Q3

REPORT INFORMATION
  Report Type: 
  Country: None (occurrence: None)
  Receive Date: 20050701
  Receipt Date: 20050701
  Transmission Date: 20060218
  Serious: Yes (Other)
  Sender: FDA-Public Use
  Company Number: None

PATIENT
  Age: 8 Year
  Sex: Female
  Weight: 27.2158 kg

DRUGS (2)
  1. ADDERALL XR 30 [Suspect]
     Indication: ATTENTION DEFICIT/HYPERACTIVITY DISORDER
     Dosage: 30MG   ONCE PER DAY   ORAL
     Route: 048
     Dates: start: 20040801, end: 20050630
  2. RITALIN LA [Suspect]
     Indication: ATTENTION DEFICIT/HYPERACTIVITY DISORDER
     Dosage: ONCE PER DAY   ORAL
     Route: 048
     Dates: start: 20030801, end: 20040731

REACTIONS (4)
  - AGGRESSION [None]
  - ANGER [None]
  - PHYSICAL ASSAULT [None]
  - SELF-INJURIOUS IDEATION [None]
